FAERS Safety Report 9463077 (Version 1)
Quarter: 2013Q3

REPORT INFORMATION
  Report Type: Spontaneous
  Country: DE (occurrence: DE)
  Receive Date: 20130816
  Receipt Date: 20130816
  Transmission Date: 20140515
  Serious: Yes (Hospitalization)
  Sender: FDA-Public Use
  Company Number: DE-B.I. PHARMACEUTICALS,INC./RIDGEFIELD-2013-BI-24569DE

PATIENT
  Sex: Female

DRUGS (7)
  1. PRADAXA [Suspect]
     Indication: ATRIAL FIBRILLATION
     Dates: start: 201304, end: 20130807
  2. VERAPAMIL [Concomitant]
  3. HCT 12, 5 [Concomitant]
  4. DIGOXIN [Concomitant]
  5. PANTOPRAZOL [Concomitant]
  6. LISINOPRIL [Concomitant]
  7. SIMVASTATIN [Concomitant]

REACTIONS (4)
  - Musculoskeletal discomfort [Recovered/Resolved]
  - Polyneuropathy [Unknown]
  - Paraesthesia [Recovered/Resolved]
  - Dyspepsia [Unknown]
